FAERS Safety Report 15555548 (Version 2)
Quarter: 2018Q4

REPORT INFORMATION
  Report Type: Spontaneous
  Country: DE (occurrence: DE)
  Receive Date: 20181026
  Receipt Date: 20181220
  Transmission Date: 20190205
  Serious: Yes (Other)
  Sender: FDA-Public Use
  Company Number: DE-HORIZON-PRE-0480-2018

PATIENT
  Sex: Female

DRUGS (4)
  1. L-THYROXIN [Concomitant]
     Active Substance: LEVOTHYROXINE SODIUM
     Dosage: 100 UG WEEKLY
  2. CANDESARTAN. [Interacting]
     Active Substance: CANDESARTAN
     Indication: HYPERTENSION
     Dosage: 4 MG WEEKLY
     Dates: end: 201810
  3. LODOTRA [Suspect]
     Active Substance: PREDNISONE
     Indication: RHEUMATOID ARTHRITIS
     Dosage: STEPWISE REDUCED FROM 4 MG TO 3 MG AND THEN TO 2 MG.
  4. VITAMIN D [Concomitant]
     Active Substance: CHOLECALCIFEROL
     Dosage: 20.000 U WEEKLY

REACTIONS (10)
  - Dizziness [Recovered/Resolved]
  - Amnesia [Recovered/Resolved]
  - Thinking abnormal [Recovered/Resolved]
  - Disturbance in attention [Recovered/Resolved]
  - Hypertension [Recovered/Resolved]
  - Drug interaction [Recovered/Resolved]
  - Hypertensive crisis [Recovered/Resolved]
  - Aphasia [Recovered/Resolved]
  - Tinnitus [Not Recovered/Not Resolved]
  - Headache [Recovered/Resolved]

NARRATIVE: CASE EVENT DATE: 2018
